FAERS Safety Report 24383296 (Version 3)
Quarter: 2025Q1

REPORT INFORMATION
  Report Type: Spontaneous
  Country: US (occurrence: US)
  Receive Date: 20241001
  Receipt Date: 20250221
  Transmission Date: 20250409
  Serious: No
  Sender: CATALYST PHARMA
  Company Number: US-CATALYST PHARMACEUTICALS-US-CATA-24-00684

PATIENT
  Sex: Male
  Weight: 69.841 kg

DRUGS (21)
  1. AGAMREE [Suspect]
     Active Substance: VAMOROLONE
     Indication: Duchenne muscular dystrophy
     Dosage: 7.5 ML DAILY
     Route: 048
     Dates: start: 20240508, end: 20240731
  2. AGAMREE [Suspect]
     Active Substance: VAMOROLONE
     Dosage: 6.4 ML ONCE DAILY (4 MG/KG/DAY) 256 MG PER DAY
     Route: 048
     Dates: start: 20240801
  3. PREDNISONE [Suspect]
     Active Substance: PREDNISONE
     Indication: Product used for unknown indication
     Dosage: 30 MG DAILY
     Route: 065
  4. PREDNISONE [Suspect]
     Active Substance: PREDNISONE
     Dosage: 20 MG DAILY
     Route: 065
  5. PREDNISONE [Suspect]
     Active Substance: PREDNISONE
     Dosage: 10 MG DAILY
     Route: 065
  6. PREDNISONE [Suspect]
     Active Substance: PREDNISONE
     Route: 065
     Dates: start: 202407
  7. EMFLAZA [Suspect]
     Active Substance: DEFLAZACORT
     Indication: Product used for unknown indication
     Dosage: 12 MG DAILY (2 TABS)
     Route: 065
     Dates: end: 202407
  8. LISINOPRIL [Concomitant]
     Active Substance: LISINOPRIL
     Indication: Cardiac disorder
     Dosage: 5 MG DAILY, 4 REFILLS
     Route: 048
  9. LISINOPRIL [Concomitant]
     Active Substance: LISINOPRIL
     Indication: Palpitations
  10. VITAMIN D3 [Concomitant]
     Active Substance: CHOLECALCIFEROL
     Indication: Bone disorder
     Dosage: 125 MCG DAILY (5000 IU)
     Route: 065
  11. VITAMIN D3 [Concomitant]
     Active Substance: CHOLECALCIFEROL
     Dosage: 2000 UNITS ONCE A DAY
     Route: 065
  12. CHOLECALCIFEROL [Concomitant]
     Active Substance: CHOLECALCIFEROL
     Indication: Product used for unknown indication
     Dosage: 25 MCG/DROP DAILY, 1000 INTL UNITS/DROP
     Route: 048
  13. CHOLECALCIFEROL [Concomitant]
     Active Substance: CHOLECALCIFEROL
     Dosage: 2000 INTL UNITS
     Route: 048
  14. AMONDYS 45 [Concomitant]
     Active Substance: CASIMERSEN
     Indication: Duchenne muscular dystrophy
     Dosage: WEEKLY
     Route: 042
  15. AMONDYS 45 [Concomitant]
     Active Substance: CASIMERSEN
     Dosage: 100 MG/2 ML WEEKLY
     Route: 042
  16. CLONIDINE [Concomitant]
     Active Substance: CLONIDINE
     Indication: Product used for unknown indication
     Dosage: 0.4 MG BID
     Route: 048
  17. HYDROCORTISONE [Concomitant]
     Active Substance: HYDROCORTISONE
     Indication: Product used for unknown indication
     Route: 048
  18. VITAMINS [Concomitant]
     Active Substance: VITAMINS
     Indication: Product used for unknown indication
     Dosage: 1 TABLET, CHEWED DAILY
     Route: 048
  19. SOLU-CORTEF ACT-O-VIAL [Concomitant]
     Indication: Product used for unknown indication
     Route: 065
  20. TYLENOL [Concomitant]
     Active Substance: ACETAMINOPHEN
     Indication: Premedication
     Route: 065
  21. BENADRYL [Concomitant]
     Active Substance: DIPHENHYDRAMINE HYDROCHLORIDE
     Indication: Premedication
     Route: 065

REACTIONS (22)
  - Wheelchair user [Unknown]
  - Sensory processing disorder [Unknown]
  - Seasonal allergy [Unknown]
  - Dizziness [Unknown]
  - Musculoskeletal chest pain [Unknown]
  - Muscle spasms [Unknown]
  - Tic [Unknown]
  - Insurance issue [Recovered/Resolved]
  - Proteinuria [Recovered/Resolved]
  - Asthenia [Unknown]
  - Snoring [Unknown]
  - Oropharyngeal pain [Not Recovered/Not Resolved]
  - Weight increased [Not Recovered/Not Resolved]
  - Condition aggravated [Not Recovered/Not Resolved]
  - Increased appetite [Not Recovered/Not Resolved]
  - Psychomotor hyperactivity [Unknown]
  - Acne [Unknown]
  - Cushingoid [Unknown]
  - Hypokalaemia [Recovered/Resolved]
  - Swelling face [Unknown]
  - Cough [Unknown]
  - Skin striae [Not Recovered/Not Resolved]

NARRATIVE: CASE EVENT DATE: 20240101
